FAERS Safety Report 7466323-7 (Version None)
Quarter: 2011Q2

REPORT INFORMATION
  Report Type: 
  Country: None (occurrence: None)
  Receive Date: 20110509
  Receipt Date: 20101228
  Transmission Date: 20111010
  Serious: No
  Sender: FDA-Public Use
  Company Number: US-SANOFI-AVENTIS-2011SA000241

PATIENT
  Age: 14 Year
  Sex: Male

DRUGS (6)
  1. LANTUS [Suspect]
     Dates: start: 20101101
  2. LANTUS [Suspect]
     Dates: start: 20100701
  3. APIDRA [Suspect]
     Dosage: 2-4 UNITS WITH EVERY MEAL
     Route: 058
     Dates: start: 20101101, end: 20101201
  4. LANTUS [Suspect]
     Dosage: DOSE:2 UNIT(S)
     Route: 058
     Dates: start: 20100701
  5. LANTUS [Suspect]
     Dosage: DOSE:4 UNIT(S)
     Route: 058
  6. APIDRA [Suspect]
     Dosage: DOSE:3 UNIT(S)
     Route: 058
     Dates: start: 20101201

REACTIONS (6)
  - WEIGHT DECREASED [None]
  - INJECTION SITE PAIN [None]
  - INJECTION SITE HAEMORRHAGE [None]
  - BLOOD GLUCOSE INCREASED [None]
  - PRODUCT QUALITY ISSUE [None]
  - DRUG INEFFECTIVE [None]
